FAERS Safety Report 17486847 (Version 1)
Quarter: 2020Q1

REPORT INFORMATION
  Report Type: Spontaneous
  Country: AT (occurrence: AT)
  Receive Date: 20200303
  Receipt Date: 20200303
  Transmission Date: 20200409
  Serious: Yes (Life-Threatening, Hospitalization, Other)
  Sender: FDA-Public Use
  Company Number: AT-STRIDES ARCOLAB LIMITED-2020SP002432

PATIENT
  Age: 58 Year
  Sex: Male

DRUGS (5)
  1. PREDNISOLONE. [Suspect]
     Active Substance: PREDNISOLONE
     Dosage: UNK, PREDNISOLONE IN A TAPERING SCHEME
     Route: 065
  2. TACROLIMUS. [Suspect]
     Active Substance: TACROLIMUS
     Indication: IMMUNOSUPPRESSANT DRUG THERAPY
     Dosage: UNK
     Route: 065
  3. TACROLIMUS. [Suspect]
     Active Substance: TACROLIMUS
     Indication: HEART TRANSPLANT
  4. AZATHIOPRINE. [Suspect]
     Active Substance: AZATHIOPRINE
     Indication: IMMUNOSUPPRESSANT DRUG THERAPY
     Dosage: UNK
     Route: 065
  5. PREDNISOLONE. [Suspect]
     Active Substance: PREDNISOLONE
     Indication: IMMUNOSUPPRESSANT DRUG THERAPY
     Dosage: UNK
     Route: 065

REACTIONS (8)
  - Metastases to central nervous system [Not Recovered/Not Resolved]
  - Metastases to liver [Not Recovered/Not Resolved]
  - Renal failure [Recovered/Resolved]
  - Metastases to lymph nodes [Not Recovered/Not Resolved]
  - Chronic kidney disease [Recovered/Resolved]
  - Metastatic malignant melanoma [Not Recovered/Not Resolved]
  - Renal atrophy [Recovered/Resolved]
  - Toxicity to various agents [Recovered/Resolved]
